FAERS Safety Report 7343007-7 (Version None)
Quarter: 2011Q1

REPORT INFORMATION
  Report Type: 
  Country: None (occurrence: None)
  Receive Date: 20110310
  Receipt Date: 20110228
  Transmission Date: 20110831
  Serious: Yes (Hospitalization)
  Sender: FDA-Public Use
  Company Number: FR-JNJFOC-20110301817

PATIENT
  Age: 81 Year
  Sex: Female
  Weight: 55.02 kg

DRUGS (8)
  1. HEPARIN SODIUM [Concomitant]
     Route: 065
  2. RISPERDAL [Suspect]
     Indication: AGGRESSION
     Route: 048
  3. CLOPIDOGREL SULFATE [Concomitant]
     Route: 065
  4. CLOPIDOGREL SULFATE [Concomitant]
     Route: 065
  5. RISPERDAL [Suspect]
     Indication: MANIA
     Route: 048
  6. BIVALIRUDIN [Suspect]
     Indication: PERCUTANEOUS CORONARY INTERVENTION
     Route: 040
  7. BIVALIRUDIN [Suspect]
     Route: 040
  8. ASPIRIN [Concomitant]
     Route: 065

REACTIONS (1)
  - MALLORY-WEISS SYNDROME [None]
